FAERS Safety Report 26058417 (Version 1)
Quarter: 2025Q4

REPORT INFORMATION
  Report Type: Report from Study
  Country: US (occurrence: US)
  Receive Date: 20251118
  Receipt Date: 20251118
  Transmission Date: 20260117
  Serious: Yes (Hospitalization)
  Sender: REGENERON
  Company Number: US-REGENERON PHARMACEUTICALS, INC.-2025-180786

PATIENT
  Sex: Female

DRUGS (2)
  1. EYLEA HD [Suspect]
     Active Substance: AFLIBERCEPT
     Indication: Diabetic retinopathy
     Dosage: 8 MG, Q4W, INTO BOTH EYES, FORMULATION: HD VIAL, STRENGTH: 8 MG/0.07ML
     Dates: start: 202502
  2. EYLEA HD [Suspect]
     Active Substance: AFLIBERCEPT
     Indication: Diabetic retinal oedema

REACTIONS (1)
  - Hospitalisation [Unknown]

NARRATIVE: CASE EVENT DATE: 20250101
